FAERS Safety Report 4663315-8 (Version None)
Quarter: 2005Q2

REPORT INFORMATION
  Report Type: 
  Country: None (occurrence: None)
  Receive Date: 20050513
  Receipt Date: 20050502
  Transmission Date: 20051028
  Serious: Yes (Other)
  Sender: FDA-Public Use
  Company Number: 2005063782

PATIENT
  Age: 33 Year
  Sex: Male

DRUGS (1)
  1. CLINDAMYCIN HYDROCHLORIDE [Suspect]
     Indication: TOOTH INFECTION
     Dosage: 300 MG (300 MG, DAILY), ORAL
     Route: 048
     Dates: start: 20050321, end: 20050323

REACTIONS (4)
  - DYSPHONIA [None]
  - HIATUS HERNIA [None]
  - OESOPHAGEAL ULCER HAEMORRHAGE [None]
  - SALIVARY HYPERSECRETION [None]
